FAERS Safety Report 13980522 (Version 1)
Quarter: 2017Q3

REPORT INFORMATION
  Report Type: Report from Study
  Country: ES (occurrence: ES)
  Receive Date: 20170918
  Receipt Date: 20170918
  Transmission Date: 20171128
  Serious: Yes (Other)
  Sender: FDA-Public Use
  Company Number: ES-ROCHE-1943172

PATIENT

DRUGS (4)
  1. DACLIZUMAB [Concomitant]
     Active Substance: DACLIZUMAB
     Indication: PROPHYLAXIS AGAINST TRANSPLANT REJECTION
     Dosage: 2 MG/KG (DAY 1)-1 MG/KG (DAY 7)
     Route: 065
  2. MYCOPHENOLATE MOFETIL. [Suspect]
     Active Substance: MYCOPHENOLATE MOFETIL
     Indication: PROPHYLAXIS AGAINST TRANSPLANT REJECTION
     Route: 065
  3. CYCLOSPORINE. [Concomitant]
     Active Substance: CYCLOSPORINE
     Indication: PROPHYLAXIS AGAINST TRANSPLANT REJECTION
     Route: 065
  4. TACROLIMUS. [Concomitant]
     Active Substance: TACROLIMUS
     Indication: PROPHYLAXIS AGAINST TRANSPLANT REJECTION
     Route: 065

REACTIONS (9)
  - Headache [Recovering/Resolving]
  - Leukopenia [Unknown]
  - Herpes zoster [Unknown]
  - Thrombocytopenia [Unknown]
  - Cytomegalovirus infection [Unknown]
  - Cytomegalovirus gastrointestinal infection [Unknown]
  - Lung neoplasm malignant [Unknown]
  - Pancytopenia [Unknown]
  - Diarrhoea [Unknown]
